FAERS Safety Report 7313466-4 (Version None)
Quarter: 2011Q1

REPORT INFORMATION
  Report Type: 
  Country: None (occurrence: None)
  Receive Date: 20110225
  Receipt Date: 20110215
  Transmission Date: 20110831
  Serious: No
  Sender: FDA-Public Use
  Company Number: US-PFIZER INC-2011003899

PATIENT
  Age: 78 Year
  Sex: Female
  Weight: 58.957 kg

DRUGS (6)
  1. ADVIL CONGESTION RELIEF [Suspect]
     Indication: NASOPHARYNGITIS
     Dosage: 1 TABLET, TWICE DAILY
     Route: 048
     Dates: start: 20101230, end: 20110103
  2. ASCORBIC ACID [Concomitant]
  3. ADVIL CONGESTION RELIEF [Suspect]
     Indication: NASAL CONGESTION
  4. GLUCOSAMINE [Concomitant]
     Dosage: UNK
  5. ONE-A-DAY [Concomitant]
  6. CALCIUM [Concomitant]

REACTIONS (1)
  - DRUG INEFFECTIVE [None]
